FAERS Safety Report 21486935 (Version 4)
Quarter: 2022Q4

REPORT INFORMATION
  Report Type: Report from Study
  Country: US (occurrence: US)
  Receive Date: 20221020
  Receipt Date: 20221125
  Transmission Date: 20230113
  Serious: Yes (Other)
  Sender: FDA-Public Use
  Company Number: US-CHIESI-2022CHF05371

PATIENT
  Age: 78 Year
  Sex: Female
  Weight: 73.8 kg

DRUGS (29)
  1. CLEVIPREX [Suspect]
     Active Substance: CLEVIDIPINE
     Indication: Blood pressure management
     Dosage: 2 MILLIGRAM, QH
     Route: 042
     Dates: start: 20220511, end: 20220511
  2. CLEVIPREX [Suspect]
     Active Substance: CLEVIDIPINE
     Dosage: 20 MILLIGRAM, QH
     Dates: start: 20220512, end: 20220512
  3. FUROSEMIDE [Concomitant]
     Active Substance: FUROSEMIDE
     Indication: Product used for unknown indication
     Dosage: UNK
     Route: 042
  4. HYDRALAZINE [Concomitant]
     Active Substance: HYDRALAZINE HYDROCHLORIDE
     Indication: Blood pressure increased
     Dosage: 10 MILLIGRAM, Q6H
     Dates: start: 20220511, end: 20220513
  5. LABETALOL [Concomitant]
     Active Substance: LABETALOL\LABETALOL HYDROCHLORIDE
     Indication: Product used for unknown indication
     Dosage: UNK, PRN
     Dates: start: 20220511, end: 20220511
  6. DEXTROSE [Concomitant]
     Active Substance: DEXTROSE
     Indication: Blood glucose decreased
     Dosage: UNK UNK, PRN
     Dates: start: 20220511, end: 20220513
  7. VARIBAR NECTAR [Concomitant]
     Active Substance: BARIUM SULFATE
     Indication: Product used for unknown indication
     Dosage: 30 MILLILITER, (1X)
     Dates: start: 20220511, end: 20220511
  8. BARIUM SULFATE [Concomitant]
     Active Substance: BARIUM SULFATE
     Indication: Product used for unknown indication
     Dosage: 10 GRAM, (1X)
     Dates: start: 20220511, end: 20220511
  9. APRESOLINE HYDROCHLORIDE [Concomitant]
     Active Substance: HYDRALAZINE HYDROCHLORIDE
     Indication: Blood pressure increased
     Dosage: 10 MILLIGRAM
     Dates: start: 20220511, end: 20220513
  10. OFIRMEV [Concomitant]
     Active Substance: ACETAMINOPHEN
     Indication: Pain
     Dosage: 1000 MILLIGRAM
     Dates: start: 20220511, end: 20220512
  11. OFIRMEV [Concomitant]
     Active Substance: ACETAMINOPHEN
     Indication: Pyrexia
  12. OFIRMEV [Concomitant]
     Active Substance: ACETAMINOPHEN
     Indication: Headache
  13. E-Z-HD [Concomitant]
     Active Substance: BARIUM SULFATE
     Indication: Product used for unknown indication
     Dosage: 340 GRAM, (1X)
     Dates: start: 20220511, end: 20220513
  14. E-Z-PAQUE [Concomitant]
     Active Substance: BARIUM SULFATE
     Indication: Product used for unknown indication
     Dosage: 176 GRAM, (1X)
     Dates: start: 20220511, end: 20220513
  15. E-Z-PAQUE [Concomitant]
     Active Substance: BARIUM SULFATE
     Indication: Product used for unknown indication
     Dosage: 355 MILLILITER, (1X)
     Dates: start: 20220511, end: 20220513
  16. POLIBAR PLUS [BARIUM SULFATE] [Concomitant]
     Indication: Product used for unknown indication
     Dosage: 300 MILLILITER, (1X)
     Dates: start: 20220511, end: 20220513
  17. CALCIUM GLUCONATE [Concomitant]
     Active Substance: CALCIUM GLUCONATE
     Indication: Product used for unknown indication
     Dosage: UNK
     Dates: start: 20220511, end: 20220513
  18. GLUCAGON HYDROCHLORIDE [Concomitant]
     Active Substance: GLUCAGON HYDROCHLORIDE
     Indication: Product used for unknown indication
     Dosage: UNK
     Dates: start: 20220511, end: 20220513
  19. HUMALOG [Concomitant]
     Active Substance: INSULIN LISPRO
     Indication: Product used for unknown indication
     Dosage: UNK
     Dates: start: 20220511, end: 20220513
  20. VISIPAQUE [Concomitant]
     Active Substance: IODIXANOL
     Indication: Product used for unknown indication
     Dosage: UNK
     Dates: start: 20220511, end: 20220513
  21. XYLOCAINE [Concomitant]
     Active Substance: LIDOCAINE HYDROCHLORIDE
     Indication: Product used for unknown indication
     Dosage: UNK
     Dates: start: 20220511, end: 20220513
  22. POTASSIUM CHLORIDE [Concomitant]
     Active Substance: POTASSIUM CHLORIDE
     Indication: Product used for unknown indication
     Dosage: UNK
     Dates: start: 20220511, end: 20220513
  23. MAGNESIUM SULFATE [Concomitant]
     Active Substance: MAGNESIUM SULFATE
     Indication: Product used for unknown indication
     Dosage: UNK
     Route: 042
     Dates: start: 20220511, end: 20220513
  24. SODIUM PHOSPHATE [Concomitant]
     Active Substance: SODIUM PHOSPHATE
     Indication: Product used for unknown indication
     Dosage: UNK
     Dates: start: 20220511, end: 20220513
  25. KAY CIEL [Concomitant]
     Active Substance: POTASSIUM CHLORIDE
     Indication: Product used for unknown indication
     Dosage: UNK
     Dates: start: 20220511, end: 20220513
  26. K PHOS NEUTRAL [Concomitant]
     Active Substance: POTASSIUM PHOSPHATE, MONOBASIC\SODIUM PHOSPHATE, DIBASIC, ANHYDROUS\SODIUM PHOSPHATE, MONOBASIC, MON
     Indication: Product used for unknown indication
     Dosage: UNK
     Dates: start: 20220511, end: 20220513
  27. SUBLIMAZE [Concomitant]
     Active Substance: FENTANYL CITRATE
     Indication: Product used for unknown indication
     Dosage: UNK
     Dates: start: 20220511, end: 20220513
  28. NORMODYNE [Concomitant]
     Active Substance: LABETALOL HYDROCHLORIDE
     Indication: Product used for unknown indication
     Dosage: UNK
     Dates: start: 20220511, end: 20220513
  29. TRANDATE [Concomitant]
     Active Substance: LABETALOL HYDROCHLORIDE
     Indication: Product used for unknown indication

REACTIONS (5)
  - Pulmonary congestion [Recovering/Resolving]
  - Troponin increased [Recovering/Resolving]
  - Pulmonary oedema [Recovering/Resolving]
  - Ventricular tachycardia [Recovering/Resolving]
  - Cardiac failure [Recovering/Resolving]

NARRATIVE: CASE EVENT DATE: 20220501
